FAERS Safety Report 15593913 (Version 6)
Quarter: 2019Q3

REPORT INFORMATION
  Report Type: Report from Study
  Country: US (occurrence: US)
  Receive Date: 20181106
  Receipt Date: 20190920
  Transmission Date: 20191004
  Serious: Yes (Hospitalization, Other)
  Sender: FDA-Public Use
  Company Number: US-ACTELION-A-US2015-127487

PATIENT
  Sex: Female
  Weight: 86.62 kg

DRUGS (5)
  1. REVATIO [Concomitant]
     Active Substance: SILDENAFIL CITRATE
  2. XARELTO [Concomitant]
     Active Substance: RIVAROXABAN
  3. OPSUMIT [Suspect]
     Active Substance: MACITENTAN
     Dosage: 10 MG, QD
     Route: 048
  4. TYVASO [Suspect]
     Active Substance: TREPROSTINIL
     Indication: PRODUCT USED FOR UNKNOWN INDICATION
     Route: 065
  5. OPSUMIT [Suspect]
     Active Substance: MACITENTAN
     Indication: PULMONARY ARTERIAL HYPERTENSION
     Dosage: 10 MG, QD
     Route: 048
     Dates: start: 20141204

REACTIONS (26)
  - Head injury [Unknown]
  - Vision blurred [Unknown]
  - Headache [Recovering/Resolving]
  - Pain [Unknown]
  - Haemoglobin decreased [Unknown]
  - Dizziness [Unknown]
  - Arthralgia [Unknown]
  - Taste disorder [Unknown]
  - Cough [Unknown]
  - Transfusion [Unknown]
  - Fatigue [Unknown]
  - Fall [Unknown]
  - Throat irritation [Unknown]
  - Ligament sprain [Unknown]
  - Oropharyngeal pain [Unknown]
  - Nasal dryness [Unknown]
  - Tongue biting [Unknown]
  - Full blood count decreased [Unknown]
  - Contusion [Unknown]
  - Device alarm issue [Unknown]
  - Herpes zoster [Recovering/Resolving]
  - Anaemia [Unknown]
  - Haemorrhage [Unknown]
  - Oral pain [Unknown]
  - Pharyngeal haemorrhage [Unknown]
  - Product administration error [Unknown]
